FAERS Safety Report 21249532 (Version 1)
Quarter: 2022Q3

REPORT INFORMATION
  Report Type: Spontaneous
  Country: CN (occurrence: CN)
  Receive Date: 20220824
  Receipt Date: 20220824
  Transmission Date: 20221026
  Serious: Yes (Other)
  Sender: FDA-Public Use
  Company Number: CN-TAKEDA-2022TJP070701

PATIENT
  Age: 54 Year
  Sex: Female

DRUGS (18)
  1. LEUPROLIDE ACETATE [Suspect]
     Active Substance: LEUPROLIDE ACETATE
     Indication: Breast cancer
     Route: 065
  2. LEUPROLIDE ACETATE [Suspect]
     Active Substance: LEUPROLIDE ACETATE
     Indication: Metastases to lung
  3. FLEXBUMIN [Suspect]
     Active Substance: ALBUMIN HUMAN
     Indication: Breast cancer
     Route: 065
  4. FLEXBUMIN [Suspect]
     Active Substance: ALBUMIN HUMAN
     Indication: Metastases to lung
  5. ANASTROZOLE [Suspect]
     Active Substance: ANASTROZOLE
     Indication: Breast cancer
     Dosage: UNK
     Route: 065
  6. ANASTROZOLE [Suspect]
     Active Substance: ANASTROZOLE
     Indication: Metastases to lung
  7. CAPECITABINE [Suspect]
     Active Substance: CAPECITABINE
     Indication: Breast cancer
     Dosage: UNK
     Route: 065
  8. CAPECITABINE [Suspect]
     Active Substance: CAPECITABINE
     Indication: Metastases to lung
  9. CISPLATIN [Suspect]
     Active Substance: CISPLATIN
     Indication: Breast cancer
     Route: 032
  10. CISPLATIN [Suspect]
     Active Substance: CISPLATIN
     Indication: Metastases to lung
  11. EVEROLIMUS [Suspect]
     Active Substance: EVEROLIMUS
     Indication: Breast cancer
     Route: 065
  12. EVEROLIMUS [Suspect]
     Active Substance: EVEROLIMUS
     Indication: Metastases to lung
  13. EXEMESTANE [Suspect]
     Active Substance: EXEMESTANE
     Indication: Breast cancer
     Route: 065
  14. EXEMESTANE [Suspect]
     Active Substance: EXEMESTANE
     Indication: Metastases to lung
  15. PACLITAXEL [Suspect]
     Active Substance: PACLITAXEL
     Indication: Breast cancer
     Route: 065
  16. PACLITAXEL [Suspect]
     Active Substance: PACLITAXEL
     Indication: Metastases to lung
  17. VINORELBINE [Suspect]
     Active Substance: VINORELBINE TARTRATE
     Indication: Breast cancer
     Route: 065
  18. VINORELBINE [Suspect]
     Active Substance: VINORELBINE TARTRATE
     Indication: Metastases to lung

REACTIONS (2)
  - Vascular pseudoaneurysm [Unknown]
  - Disease progression [Unknown]
